FAERS Safety Report 5261037-6 (Version None)
Quarter: 2007Q1

REPORT INFORMATION
  Report Type: 
  Country: None (occurrence: None)
  Receive Date: 20070309
  Receipt Date: 20070228
  Transmission Date: 20070707
  Serious: Yes (Other)
  Sender: FDA-Public Use
  Company Number: 2006UW18926

PATIENT
  Age: 26152 Day
  Sex: Female
  Weight: 75 kg

DRUGS (12)
  1. SEROQUEL [Suspect]
     Indication: DEPRESSION
     Route: 048
     Dates: start: 20030228, end: 20050724
  2. SEROQUEL [Suspect]
     Route: 048
     Dates: start: 20050724, end: 20060101
  3. RISPERDAL [Concomitant]
     Dates: start: 20020401
  4. PAXIL [Concomitant]
  5. BUSPAR [Concomitant]
  6. DEXEDRINE [Concomitant]
  7. SERZONE [Concomitant]
  8. CELEXA [Concomitant]
  9. LAMICTAL [Concomitant]
  10. NEURONTIN [Concomitant]
  11. ALPRAZOLAM [Concomitant]
  12. FLUVOXAMINE MALEATE [Concomitant]

REACTIONS (4)
  - BLOOD TRIGLYCERIDES INCREASED [None]
  - BREAST CANCER [None]
  - DIABETES MELLITUS [None]
  - PANCREATITIS [None]
